FAERS Safety Report 8756429 (Version 1)
Quarter: 2012Q4

REPORT INFORMATION
  Report Type: 
  Country: US (occurrence: US)
  Receive Date: 20120828
  Receipt Date: 20120828
  Transmission Date: 20130627
  Serious: Yes (Hospitalization)
  Sender: FDA-Public Use
  Company Number: US-BIOGENIDEC-2012BI032674

PATIENT
  Age: 51 None
  Sex: Male

DRUGS (2)
  1. TYSABRI [Suspect]
     Indication: MULTIPLE SCLEROSIS
     Route: 042
     Dates: start: 20071003
  2. METHENAMINE [Concomitant]
     Indication: PROPHYLAXIS URINARY TRACT INFECTION
     Dates: start: 20120810

REACTIONS (5)
  - Cystitis [Recovered/Resolved]
  - Pneumonia [Unknown]
  - Tremor [Unknown]
  - Hyperhidrosis [Unknown]
  - Somnolence [Unknown]
